FAERS Safety Report 9771817 (Version 1)
Quarter: 2013Q3

REPORT INFORMATION
  Report Type: Spontaneous
  Country: US (occurrence: None)
  Receive Date: 20130920
  Receipt Date: 20130920
  Transmission Date: 20140515
  Serious: Yes (Hospitalization, Other)
  Sender: FDA-Public Use
  Company Number: KAD201308-001000

PATIENT
  Age: 50 Year
  Sex: Male
  Weight: 97.4 kg

DRUGS (3)
  1. RIBAVIRIN [Suspect]
     Indication: CHRONIC HEPATITIS C
     Route: 048
     Dates: start: 20130430
  2. INCIVO (TELAPREVIR) [Suspect]
     Indication: CHRONIC HEPATITIS C
     Dosage: TABLET, 750 MG, THREE TIMES A DAY, ORAL
     Route: 048
     Dates: start: 20130430, end: 20130729
  3. PEGASYS [Suspect]
     Indication: CHRONIC HEPATITIS C
     Route: 058
     Dates: start: 20130430

REACTIONS (2)
  - Haematoma [None]
  - Anal abscess [None]
